FAERS Safety Report 7430002-2 (Version None)
Quarter: 2011Q2

REPORT INFORMATION
  Report Type: 
  Country: None (occurrence: None)
  Receive Date: 20110421
  Receipt Date: 20110412
  Transmission Date: 20111010
  Serious: Yes (Hospitalization)
  Sender: FDA-Public Use
  Company Number: US-ASTRAZENECA-2011SE21710

PATIENT
  Age: 53 Year
  Sex: Female

DRUGS (3)
  1. NEXIUM [Suspect]
     Route: 048
  2. SEROQUEL [Suspect]
     Indication: INSOMNIA
     Route: 048
  3. PREVACID [Concomitant]

REACTIONS (6)
  - ULCER [None]
  - OSTEOPOROSIS [None]
  - ARTHRITIS [None]
  - SURGERY [None]
  - GASTROOESOPHAGEAL REFLUX DISEASE [None]
  - OFF LABEL USE [None]
